FAERS Safety Report 16587289 (Version 1)
Quarter: 2019Q3

REPORT INFORMATION
  Report Type: Spontaneous
  Country: US (occurrence: US)
  Receive Date: 20190717
  Receipt Date: 20190717
  Transmission Date: 20191004
  Serious: Yes (Hospitalization)
  Sender: FDA-Public Use
  Company Number: US-SA-2019SA190734

PATIENT
  Sex: Male

DRUGS (2)
  1. JEVTANA [Suspect]
     Active Substance: CABAZITAXEL
     Indication: PROSTATE CANCER
     Dosage: UNK
     Route: 042
  2. JEVTANA [Suspect]
     Active Substance: CABAZITAXEL
     Dosage: UNK
     Route: 042

REACTIONS (2)
  - Haemoglobin decreased [Unknown]
  - Haematuria [Unknown]
